FAERS Safety Report 15306175 (Version 2)
Quarter: 2018Q3

REPORT INFORMATION
  Report Type: Spontaneous
  Country: US (occurrence: US)
  Receive Date: 20180822
  Receipt Date: 20180904
  Transmission Date: 20181010
  Serious: No
  Sender: FDA-Public Use
  Company Number: US-PFIZER INC-2017099440

PATIENT
  Age: 50 Year
  Sex: Female
  Weight: 113 kg

DRUGS (11)
  1. METFORMIN [Concomitant]
     Active Substance: METFORMIN HYDROCHLORIDE
     Dosage: 1000 MG, 2X/DAY
     Dates: start: 20140214
  2. AMITRIPTYLINE [Concomitant]
     Active Substance: AMITRIPTYLINE
     Dosage: UNK UNK, 1X/DAY [10MG; SIG? 1?2Q HS]
     Dates: start: 20160407
  3. ATORVASTATIN [Concomitant]
     Active Substance: ATORVASTATIN
     Dosage: 10 MG, DAILY
     Dates: start: 20160411
  4. IBUPROFEN. [Concomitant]
     Active Substance: IBUPROFEN
     Dosage: 800 MG, 3X/DAY (1 TID WITH FOOD)
     Route: 048
     Dates: start: 20160407
  5. FUROSEMIDE. [Concomitant]
     Active Substance: FUROSEMIDE
     Dosage: 40 MG, 1X/DAY
     Route: 048
     Dates: start: 20150413
  6. LOVAZA [Concomitant]
     Active Substance: OMEGA-3-ACID ETHYL ESTERS
     Dosage: 2 G, 2X/DAY (2 CAPSULES BID)
     Dates: start: 20170227
  7. LYRICA [Suspect]
     Active Substance: PREGABALIN
     Indication: NEUROPATHY PERIPHERAL
     Dosage: 150 MG, 2X/DAY
     Route: 048
     Dates: start: 20170223
  8. GLYBURIDE. [Concomitant]
     Active Substance: GLYBURIDE
     Dosage: 2.5 MG, 1X/DAY
     Route: 048
  9. TRICOR [FENOFIBRATE] [Concomitant]
     Dosage: 145 MG, 1X/DAY
     Dates: start: 20140214
  10. PHENTERMINE. [Concomitant]
     Active Substance: PHENTERMINE
     Dosage: 30 MG, 1X/DAY
     Dates: start: 20170223
  11. JANUVIA [Concomitant]
     Active Substance: SITAGLIPTIN PHOSPHATE
     Dosage: 100 MG, 1X/DAY
     Dates: start: 20140304

REACTIONS (1)
  - No adverse event [Unknown]
